FAERS Safety Report 7623882-9 (Version None)
Quarter: 2011Q3

REPORT INFORMATION
  Report Type: 
  Country: None (occurrence: None)
  Receive Date: 20110720
  Receipt Date: 20110718
  Transmission Date: 20111222
  Serious: Yes (Other)
  Sender: FDA-Public Use
  Company Number: US-PFIZER INC-2011162811

PATIENT
  Sex: Female

DRUGS (10)
  1. CHANTIX [Suspect]
     Dosage: 1 MG, UNK
     Dates: start: 20100101, end: 20100101
  2. FLONASE [Concomitant]
     Indication: RHINITIS ALLERGIC
     Dosage: UNK
  3. TENORMIN [Concomitant]
     Dosage: 50 MG, 2X/DAY
  4. BENADRYL [Concomitant]
     Indication: RHINITIS ALLERGIC
     Dosage: 50 MG, 2X/DAY
  5. PHENOBARBITAL [Concomitant]
     Indication: CONVULSION
     Dosage: 32 MG, UNK
  6. CHANTIX [Suspect]
     Indication: SMOKING CESSATION THERAPY
     Dosage: 0.5 MG, UNK
     Dates: start: 20100801, end: 20100101
  7. DICLOFENAC [Concomitant]
     Dosage: 10 MG, 2X/DAY
  8. NEURONTIN [Concomitant]
     Dosage: 400 MG, UNK
  9. LEVOXYL [Concomitant]
     Indication: HYPOTHYROIDISM
     Dosage: 0.12 MG, UNK
  10. ALBUTEROL SULFATE AUTOHALER [Concomitant]
     Indication: RHINITIS ALLERGIC
     Dosage: UNK

REACTIONS (2)
  - ASTHMA [None]
  - ABDOMINAL DISCOMFORT [None]
